FAERS Safety Report 17390491 (Version 1)
Quarter: 2020Q1

REPORT INFORMATION
  Report Type: Spontaneous
  Country: HR (occurrence: HR)
  Receive Date: 20200207
  Receipt Date: 20200207
  Transmission Date: 20200409
  Serious: Yes (Other)
  Sender: FDA-Public Use
  Company Number: HR-US-PROVELL PHARMACEUTICALS LLC-E2B_90074645

PATIENT
  Sex: Female

DRUGS (1)
  1. EUTHYROX [Suspect]
     Active Substance: LEVOTHYROXINE SODIUM
     Indication: PRODUCT USED FOR UNKNOWN INDICATION
     Route: 048
     Dates: start: 2019

REACTIONS (5)
  - Retching [Unknown]
  - Flatulence [Unknown]
  - Arrhythmia [Unknown]
  - Tachycardia [Unknown]
  - Hypertension [Unknown]

NARRATIVE: CASE EVENT DATE: 2019
